FAERS Safety Report 4539276-9 (Version None)
Quarter: 2004Q4

REPORT INFORMATION
  Report Type: 
  Country: None (occurrence: None)
  Receive Date: 20041222
  Receipt Date: 20041213
  Transmission Date: 20050328
  Serious: Yes (Other)
  Sender: FDA-Public Use
  Company Number: CHNY2004DE02324

PATIENT
  Age: 76 Year
  Sex: Female

DRUGS (1)
  1. SCOPODERM TTS (NCH) (HYOSCINE HYDROBROMIDE) TRANS-THEREAPEUTIC SYSTEM [Suspect]
     Dosage: 1 DF, Q72H, TRANSDERMAL
     Route: 062
     Dates: start: 20041017, end: 20041020

REACTIONS (5)
  - AMNESIA [None]
  - ANXIETY [None]
  - CONFUSIONAL STATE [None]
  - MANIA [None]
  - PERSECUTORY DELUSION [None]
